FAERS Safety Report 12601416 (Version 1)
Quarter: 2016Q3

REPORT INFORMATION
  Report Type: Spontaneous
  Country: US (occurrence: None)
  Receive Date: 20160727
  Receipt Date: 20160727
  Transmission Date: 20161109
  Serious: Yes (Life-Threatening)
  Sender: FDA-Public Use
  Company Number: None

PATIENT
  Age: 65 Year
  Sex: Male

DRUGS (1)
  1. DOCUSATE SODIUM LIQUID, 50 MG/5 ML [Suspect]
     Active Substance: DOCUSATE SODIUM
     Route: 048
     Dates: start: 20160622, end: 20160629

REACTIONS (1)
  - Burkholderia cepacia complex infection [None]

NARRATIVE: CASE EVENT DATE: 20160711
